FAERS Safety Report 23831591 (Version 5)
Quarter: 2025Q2

REPORT INFORMATION
  Report Type: Spontaneous
  Country: US (occurrence: US)
  Receive Date: 20240508
  Receipt Date: 20250506
  Transmission Date: 20250716
  Serious: No
  Sender: PFIZER
  Company Number: US-PFIZER INC-PV202400059167

PATIENT
  Age: 77 Year
  Sex: Male

DRUGS (1)
  1. BRAFTOVI [Suspect]
     Active Substance: ENCORAFENIB
     Dosage: 225 MG, DAILY (3 CAPSULES, DAILY)
     Route: 048

REACTIONS (3)
  - Gait disturbance [Unknown]
  - Hyperkeratosis [Unknown]
  - Dry skin [Unknown]
